FAERS Safety Report 8048953-7 (Version None)
Quarter: 2012Q1

REPORT INFORMATION
  Report Type: 
  Country: None (occurrence: None)
  Receive Date: 20120117
  Receipt Date: 20120112
  Transmission Date: 20120608
  Serious: No
  Sender: FDA-Public Use
  Company Number: US-PFIZER INC-2011290271

PATIENT
  Sex: Female

DRUGS (2)
  1. ALPRAZOLAM [Suspect]
     Dosage: 1 MG, UNK
  2. ALPRAZOLAM [Suspect]
     Dosage: UNK

REACTIONS (5)
  - NAUSEA [None]
  - HEADACHE [None]
  - EYE PRURITUS [None]
  - EYE OEDEMA [None]
  - LETHARGY [None]
